FAERS Safety Report 8838271 (Version 1)
Quarter: 2012Q4

REPORT INFORMATION
  Report Type: 
  Country: US (occurrence: US)
  Receive Date: 20121011
  Receipt Date: 20121011
  Transmission Date: 20130627
  Serious: Yes (Other)
  Sender: FDA-Public Use
  Company Number: US-ROCHE-1136985

PATIENT
  Sex: Female

DRUGS (11)
  1. RITUXAN [Suspect]
     Indication: SYSTEMIC LUPUS ERYTHEMATOSUS
     Route: 065
  2. RITUXAN [Suspect]
     Indication: SYSTEMIC LUPUS ERYTHEMATOSUS
  3. RITUXAN [Suspect]
     Indication: LUPUS ENDOCARDITIS
  4. RITUXAN [Suspect]
     Indication: OFF LABEL USE
  5. CELLCEPT [Suspect]
     Indication: PRODUCT USED FOR UNKNOWN INDICATION
     Route: 065
  6. PREDNISONE [Concomitant]
  7. AZATHIOPRINE [Concomitant]
  8. CYTOXAN [Concomitant]
     Route: 042
  9. CYTOXAN [Concomitant]
     Route: 048
  10. IMURAN [Concomitant]
  11. PLAQUENIL [Concomitant]

REACTIONS (9)
  - Cervical myelopathy [Unknown]
  - Palpitations [Unknown]
  - Dizziness [Unknown]
  - Nausea [Unknown]
  - Diarrhoea [Unknown]
  - Pain in extremity [Unknown]
  - Mouth ulceration [Unknown]
  - Alopecia [Unknown]
  - Viral infection [Unknown]
